FAERS Safety Report 12819742 (Version 1)
Quarter: 2016Q4

REPORT INFORMATION
  Report Type: Report from Study
  Country: US (occurrence: US)
  Receive Date: 20161006
  Receipt Date: 20161006
  Transmission Date: 20170207
  Serious: No
  Sender: FDA-Public Use
  Company Number: US-AMGEN-USASL2015139723

PATIENT
  Age: 85 Year
  Sex: Female

DRUGS (1)
  1. PROLIA [Suspect]
     Active Substance: DENOSUMAB
     Indication: PRODUCT USED FOR UNKNOWN INDICATION
     Dosage: UNK
     Route: 065
     Dates: start: 20150605

REACTIONS (15)
  - Arthritis [Unknown]
  - Back pain [Unknown]
  - Feeling abnormal [Unknown]
  - Mobility decreased [Unknown]
  - Dysstasia [Unknown]
  - Insomnia [Unknown]
  - Myalgia [Unknown]
  - Pain in extremity [Unknown]
  - Arthropathy [Unknown]
  - Muscular weakness [Unknown]
  - Lethargy [Unknown]
  - Arthralgia [Unknown]
  - Pain [Unknown]
  - Dyspnoea exertional [Unknown]
  - Bone pain [Unknown]

NARRATIVE: CASE EVENT DATE: 2015
